FAERS Safety Report 6341338-0 (Version None)
Quarter: 2009Q3

REPORT INFORMATION
  Report Type: 
  Country: None (occurrence: None)
  Receive Date: 20090904
  Receipt Date: 20090826
  Transmission Date: 20100115
  Serious: Yes (Hospitalization)
  Sender: FDA-Public Use
  Company Number: PHHY2009JP01575

PATIENT
  Age: 45 Year
  Sex: Female

DRUGS (4)
  1. GLEEVEC [Suspect]
     Indication: CHRONIC MYELOID LEUKAEMIA
     Dosage: 400 MG/DAY
     Route: 048
  2. GLEEVEC [Suspect]
     Dosage: 300 MG/DAY
     Route: 048
  3. GLEEVEC [Suspect]
     Dosage: 200 MG/DAY
     Route: 048
  4. GLEEVEC [Suspect]
     Dosage: 100 MG/DAY
     Route: 048

REACTIONS (5)
  - ENDOMETRIAL CANCER [None]
  - HAEMOGLOBIN DECREASED [None]
  - HYSTERECTOMY [None]
  - OVARIAN CANCER [None]
  - UTERINE CANCER [None]
